FAERS Safety Report 9255720 (Version 2)
Quarter: 2014Q1

REPORT INFORMATION
  Report Type: Spontaneous
  Country: US (occurrence: None)
  Receive Date: 20121212
  Receipt Date: 20130314
  Transmission Date: 20141002
  Serious: No
  Sender: FDA-Public Use
  Company Number: 1210USA001567

PATIENT
  Sex: Female

DRUGS (3)
  1. PEGINTRON [Suspect]
     Indication: HEPATITIS C
     Dates: start: 20120907, end: 20121126
  2. RIBAVIRIN [Suspect]
     Indication: HEPATITIS C
     Dates: start: 20120907, end: 20121126
  3. VICTRELIS [Suspect]
     Indication: HEPATITIS C
     Dates: start: 20121005, end: 20121126

REACTIONS (4)
  - Laboratory test abnormal [None]
  - Headache [None]
  - Nausea [None]
  - Drug ineffective [None]
